FAERS Safety Report 6834972-2 (Version None)
Quarter: 2010Q3

REPORT INFORMATION
  Report Type: 
  Country: None (occurrence: None)
  Receive Date: 20100713
  Receipt Date: 20100704
  Transmission Date: 20110219
  Serious: Yes (Hospitalization)
  Sender: FDA-Public Use
  Company Number: IT-BIOGENIDEC-2010BI021117

PATIENT
  Age: 34 Year
  Sex: Female

DRUGS (9)
  1. TYSABRI [Suspect]
     Indication: RELAPSING-REMITTING MULTIPLE SCLEROSIS
     Route: 042
     Dates: start: 20091028, end: 20100101
  2. TYSABRI [Suspect]
     Dates: start: 20100201
  3. L-TIROXINE [Concomitant]
     Dosage: DOSE UNIT:50
  4. GABAPENTIN [Concomitant]
  5. OMEPRAZOLE [Concomitant]
  6. BACLOFEN [Concomitant]
  7. SERTRALINE HCL [Concomitant]
  8. TROSPIUM CLORURE [Concomitant]
  9. 4-AMINOPIRIDINE [Concomitant]

REACTIONS (1)
  - CERVICAL DYSPLASIA [None]
